FAERS Safety Report 11389580 (Version 1)
Quarter: 2015Q3

REPORT INFORMATION
  Report Type: Spontaneous
  Country: US (occurrence: US)
  Receive Date: 20150817
  Receipt Date: 20150817
  Transmission Date: 20151125
  Serious: No
  Sender: FDA-Public Use
  Company Number: US-TAKEDA-2014TUS014060

PATIENT
  Age: 57 Year
  Sex: Male
  Weight: 79.37 kg

DRUGS (2)
  1. ROZEREM [Suspect]
     Active Substance: RAMELTEON
     Indication: INSOMNIA
     Dosage: 8 MG, QHS, AS REQUIRED
     Route: 048
     Dates: start: 20141210
  2. OTHER MEDS NOT REPORTED [Concomitant]

REACTIONS (1)
  - Nausea [Recovered/Resolved]
